FAERS Safety Report 4661205-8 (Version None)
Quarter: 2005Q2

REPORT INFORMATION
  Report Type: 
  Country: None (occurrence: None)
  Receive Date: 20050513
  Receipt Date: 20050502
  Transmission Date: 20051028
  Serious: Yes (Disabling, Other)
  Sender: FDA-Public Use
  Company Number: JP-BRISTOL-MYERS SQUIBB COMPANY-12951901

PATIENT
  Age: 74 Year
  Sex: Female

DRUGS (2)
  1. KENACORT [Suspect]
     Indication: SCAR
     Route: 058
     Dates: start: 20040706, end: 20040706
  2. LIDOCAINE AND EPINEPHRINE [Suspect]
     Indication: LOCAL ANAESTHESIA
     Route: 058
     Dates: start: 20040706, end: 20040706

REACTIONS (1)
  - RETINAL ARTERY OCCLUSION [None]
